FAERS Safety Report 20591187 (Version 1)
Quarter: 2022Q1

REPORT INFORMATION
  Report Type: Spontaneous
  Country: US (occurrence: US)
  Receive Date: 20220314
  Receipt Date: 20220314
  Transmission Date: 20220423
  Serious: No
  Sender: FDA-Public Use
  Company Number: US-SA-SAC20220309000765

PATIENT
  Sex: Female

DRUGS (17)
  1. DUPIXENT [Suspect]
     Active Substance: DUPILUMAB
     Indication: Asthma
     Dosage: 200 MG, QOW
     Route: 058
  2. ADVAIR HFA [Concomitant]
     Active Substance: FLUTICASONE PROPIONATE\SALMETEROL XINAFOATE
  3. ARIPIPRAZOLE [Concomitant]
     Active Substance: ARIPIPRAZOLE
  4. BUMETANIDE [Concomitant]
     Active Substance: BUMETANIDE
  5. CALCIUM [Concomitant]
     Active Substance: CALCIUM
  6. CITALOPRAM HYDROBROMIDE [Concomitant]
     Active Substance: CITALOPRAM HYDROBROMIDE
  7. LINZESS [Concomitant]
     Active Substance: LINACLOTIDE
  8. METFORMIN HYDROCHLORIDE [Concomitant]
     Active Substance: METFORMIN HYDROCHLORIDE
  9. MODAFINIL [Concomitant]
     Active Substance: MODAFINIL
  10. SIMVASTATIN [Concomitant]
     Active Substance: SIMVASTATIN
  11. VITAMIN B12 [Concomitant]
     Active Substance: CYANOCOBALAMIN
  12. VITAMIN D NOS [Concomitant]
     Active Substance: VITAMIN D NOS
  13. ZINC [Concomitant]
     Active Substance: ZINC
  14. VITAMIN C [Concomitant]
     Active Substance: ASCORBIC ACID
  15. KLOR-CON [Concomitant]
     Active Substance: POTASSIUM CHLORIDE
  16. LEVETIRACETAM [Concomitant]
     Active Substance: LEVETIRACETAM
  17. MAGNESIUM [Concomitant]
     Active Substance: MAGNESIUM

REACTIONS (5)
  - Hypotension [Unknown]
  - Dizziness [Unknown]
  - Cold sweat [Unknown]
  - Blood pressure fluctuation [Unknown]
  - Balance disorder [Unknown]
